FAERS Safety Report 16354447 (Version 1)
Quarter: 2019Q2

REPORT INFORMATION
  Report Type: Spontaneous
  Country: US (occurrence: US)
  Receive Date: 20190524
  Receipt Date: 20190524
  Transmission Date: 20190711
  Serious: No
  Sender: FDA-Public Use
  Company Number: US-BAUSCH-BL-2018-013350

PATIENT
  Sex: Female

DRUGS (1)
  1. LOTEPREDNOL ETABONATE OPHTHALMIC OINTMENT 0.5% [Suspect]
     Active Substance: LOTEPREDNOL ETABONATE
     Indication: BLEPHARITIS
     Dosage: AS DIRECTED
     Route: 047
     Dates: start: 20180412, end: 20180426

REACTIONS (3)
  - Visual impairment [Not Recovered/Not Resolved]
  - Eye pain [Not Recovered/Not Resolved]
  - Off label use [Recovered/Resolved]

NARRATIVE: CASE EVENT DATE: 20180412
